FAERS Safety Report 9321396 (Version 1)
Quarter: 2013Q2

REPORT INFORMATION
  Report Type: Spontaneous
  Country: US (occurrence: None)
  Receive Date: 20130531
  Receipt Date: 20130531
  Transmission Date: 20140414
  Serious: Yes (Hospitalization)
  Sender: FDA-Public Use
  Company Number: None

PATIENT
  Age: 72 Year
  Sex: Female
  Weight: 77.9 kg

DRUGS (1)
  1. TOPOTECAN [Suspect]
     Dates: end: 20130518

REACTIONS (3)
  - Pancreatitis acute [None]
  - Pancytopenia [None]
  - Lung infiltration [None]
